FAERS Safety Report 8416084-X (Version None)
Quarter: 2012Q2

REPORT INFORMATION
  Report Type: 
  Country: None (occurrence: None)
  Receive Date: 20120606
  Receipt Date: 20120529
  Transmission Date: 20120825
  Serious: Yes (Other)
  Sender: FDA-Public Use
  Company Number: ES-ROCHE-1073443

PATIENT
  Age: 72 Year
  Sex: Female

DRUGS (4)
  1. HERCEPTIN [Suspect]
     Dates: start: 20120101
  2. HERCEPTIN [Suspect]
     Indication: BREAST CANCER
     Dates: start: 20050101
  3. LETROZOLE [Concomitant]
  4. LAPATINIB [Suspect]
     Indication: BREAST CANCER
     Dates: start: 20110101

REACTIONS (1)
  - TRANSAMINASES INCREASED [None]
